FAERS Safety Report 7992498-7 (Version None)
Quarter: 2011Q4

REPORT INFORMATION
  Report Type: 
  Country: None (occurrence: None)
  Receive Date: 20111219
  Receipt Date: 20111214
  Transmission Date: 20120403
  Serious: Yes (Hospitalization)
  Sender: FDA-Public Use
  Company Number: FR-PFIZER INC-2011303881

PATIENT
  Age: 63 Year
  Sex: Female

DRUGS (6)
  1. LEVOTHYROXINE SODIUM [Concomitant]
     Dosage: UNK
  2. NOCTAMID [Suspect]
     Indication: INSOMNIA
     Dosage: 2 MG, 1X/DAY
     Route: 048
     Dates: end: 20110713
  3. ACETAMINOPHEN AND CODEINE PHOSPHATE [Suspect]
     Indication: PAIN
     Dosage: UNK
     Route: 048
     Dates: end: 20110713
  4. XANAX [Suspect]
     Indication: ANXIETY
     Dosage: 0.25 MG, 3X/DAY
     Route: 048
     Dates: end: 20110713
  5. TEGRETOL-XR [Suspect]
     Indication: BIPOLAR I DISORDER
     Dosage: 400 MG, 1X/DAY
     Route: 048
     Dates: start: 20110620, end: 20110713
  6. DESLORATADINE [Suspect]
     Dosage: 5 MG, 1X/DAY
     Route: 048
     Dates: end: 20110713

REACTIONS (2)
  - DRUG RASH WITH EOSINOPHILIA AND SYSTEMIC SYMPTOMS [None]
  - PSYCHIATRIC DECOMPENSATION [None]
